FAERS Safety Report 22233627 (Version 2)
Quarter: 2023Q2

REPORT INFORMATION
  Report Type: Spontaneous
  Country: US (occurrence: US)
  Receive Date: 20230420
  Receipt Date: 20230622
  Transmission Date: 20230721
  Serious: Yes (Other)
  Sender: FDA-Public Use
  Company Number: US-TAKEDA-2023TUS038127

PATIENT
  Age: 46 Year
  Sex: Male
  Weight: 79 kg

DRUGS (1)
  1. ADDERALL XR [Suspect]
     Active Substance: AMPHETAMINE ASPARTATE\AMPHETAMINE SULFATE\DEXTROAMPHETAMINE SACCHARATE\DEXTROAMPHETAMINE SULFATE
     Indication: Attention deficit hyperactivity disorder
     Dosage: 10 MILLIGRAM, BID
     Route: 065
     Dates: start: 2002

REACTIONS (8)
  - Suicidal ideation [Unknown]
  - Impaired quality of life [Unknown]
  - Mental disorder [Unknown]
  - Feeling abnormal [Unknown]
  - Depression [Unknown]
  - Anger [Unknown]
  - Drug ineffective [Unknown]
  - Product availability issue [Unknown]
